FAERS Safety Report 8970067 (Version 1)
Quarter: 2012Q4

REPORT INFORMATION
  Report Type: 
  Country: US (occurrence: US)
  Receive Date: 20121218
  Receipt Date: 20121218
  Transmission Date: 20130627
  Serious: No
  Sender: FDA-Public Use
  Company Number: US-BRISTOL-MYERS SQUIBB COMPANY-16214090

PATIENT
  Age: 37 Year
  Sex: Female

DRUGS (1)
  1. ABILIFY TABS 5 MG [Suspect]
     Indication: DEPRESSION
     Dosage: Initially 2mg,dose increased to 10 mg
     Route: 048

REACTIONS (1)
  - Night sweats [Unknown]
